FAERS Safety Report 11167950 (Version 1)
Quarter: 2015Q2

REPORT INFORMATION
  Report Type: Spontaneous
  Country: CA (occurrence: CA)
  Receive Date: 20150605
  Receipt Date: 20150605
  Transmission Date: 20150821
  Serious: Yes (Life-Threatening)
  Sender: FDA-Public Use
  Company Number: CA-B.I. PHARMACEUTICALS,INC./RIDGEFIELD-2015-BI-29955CN

PATIENT
  Age: 43 Year
  Sex: Male
  Weight: 61 kg

DRUGS (2)
  1. FLOMAX [Suspect]
     Active Substance: TAMSULOSIN HYDROCHLORIDE
     Indication: PROSTATITIS
     Dosage: 1 ANZ
     Route: 065
  2. COTAZYM ECS [Concomitant]
     Indication: PRODUCT USED FOR UNKNOWN INDICATION
     Dosage: STRENGTH: 8
     Route: 065

REACTIONS (3)
  - Lip swelling [Recovered/Resolved]
  - Musculoskeletal stiffness [Recovered/Resolved]
  - Nasal congestion [Recovered/Resolved]
